FAERS Safety Report 21369852 (Version 1)
Quarter: 2022Q3

REPORT INFORMATION
  Report Type: Spontaneous
  Country: NL (occurrence: NL)
  Receive Date: 20220923
  Receipt Date: 20220923
  Transmission Date: 20221027
  Serious: Yes (Death, Life-Threatening, Hospitalization)
  Sender: FDA-Public Use
  Company Number: None

PATIENT
  Age: 70 Year
  Weight: 67 kg

DRUGS (14)
  1. METHOTREXATE [Suspect]
     Active Substance: METHOTREXATE
     Indication: Diffuse large B-cell lymphoma stage IV
     Dosage: 5300 MILLIGRAM (HIGH-DOSE)
     Route: 065
  2. RITUXIMAB [Suspect]
     Active Substance: RITUXIMAB
     Indication: Diffuse large B-cell lymphoma stage IV
     Dosage: 375 MILLIGRAM/SQ. METER (ON DAY 1)
     Route: 065
  3. DEXAMETHASONE [Suspect]
     Active Substance: DEXAMETHASONE
     Indication: Diffuse large B-cell lymphoma stage IV
     Dosage: 40 MILLIGRAM, QD (ON DAY 1 THROUGH DAY 4)
     Route: 065
  4. CYTARABINE [Suspect]
     Active Substance: CYTARABINE
     Indication: Diffuse large B-cell lymphoma stage IV
     Dosage: 2000 MILLIGRAM/SQ. METER, BID, ON DAY 2
     Route: 065
  5. CISPLATIN [Suspect]
     Active Substance: CISPLATIN
     Indication: Diffuse large B-cell lymphoma stage IV
     Dosage: 100 MILLIGRAM/SQ. METER (ON DAY 1)
     Route: 065
  6. LEUCOVORIN [Suspect]
     Active Substance: LEUCOVORIN
     Indication: Drug toxicity prophylaxis
     Dosage: 1200 MILLIGRAM, QD
     Route: 042
  7. LEUCOVORIN [Suspect]
     Active Substance: LEUCOVORIN
     Indication: Drug toxicity prophylaxis
     Dosage: UNK (EYE DROPS)
     Route: 065
  8. LEUCOVORIN [Suspect]
     Active Substance: LEUCOVORIN
     Indication: Drug toxicity prophylaxis
     Dosage: UNK (MOUTH WASH)
     Route: 065
  9. CHARCOAL [Suspect]
     Active Substance: ACTIVATED CHARCOAL
     Indication: Toxicity to various agents
     Dosage: UNK
     Route: 065
  10. SODIUM SULFATE [Suspect]
     Active Substance: SODIUM SULFATE
     Indication: Toxicity to various agents
     Dosage: UNK
     Route: 065
  11. DEXTROSE [Concomitant]
     Active Substance: DEXTROSE
     Indication: Hypervolaemia
     Dosage: UNK (HYPERHYDRATION WITH 4 LITERS GLUCOSE...
     Route: 065
  12. SODIUM CHLORIDE [Concomitant]
     Active Substance: SODIUM CHLORIDE
     Indication: Hypervolaemia
     Dosage: UNK (HYPERHYDRATION WITH 4 LITERS GLUCOSE...
     Route: 065
  13. SODIUM BICARBONATE [Concomitant]
     Active Substance: SODIUM BICARBONATE
     Indication: Hypervolaemia
     Dosage: 20 MILLILITER (HYPERHYDRATION WITH 4 LITERS GLUCOSE...
     Route: 065
  14. POTASSIUM CHLORIDE [Concomitant]
     Active Substance: POTASSIUM CHLORIDE
     Indication: Hypervolaemia
     Dosage: 20 MILLIMOLE (HYPERHYDRATION WITH 4 LITERS GLUCOSE...
     Route: 065

REACTIONS (4)
  - Toxicity to various agents [Fatal]
  - Drug ineffective [Fatal]
  - Respiratory failure [Unknown]
  - Acute kidney injury [Unknown]
